FAERS Safety Report 9132841 (Version 4)
Quarter: 2014Q2

REPORT INFORMATION
  Report Type: Report from Study
  Country: JP (occurrence: JP)
  Receive Date: 20130301
  Receipt Date: 20140428
  Transmission Date: 20141212
  Serious: Yes (Hospitalization, Other)
  Sender: FDA-Public Use
  Company Number: JP-JNJFOC-20130214784

PATIENT
  Age: 69 Year
  Sex: Male
  Weight: 79 kg

DRUGS (10)
  1. STELARA [Suspect]
     Indication: PSORIASIS
     Route: 058
     Dates: start: 20120808
  2. STELARA [Suspect]
     Indication: PSORIASIS
     Route: 058
     Dates: start: 20120521
  3. STELARA [Suspect]
     Indication: PSORIASIS
     Route: 058
     Dates: start: 20120229
  4. STELARA [Suspect]
     Indication: PSORIASIS
     Route: 058
     Dates: start: 20120202
  5. ZYRTEC [Concomitant]
     Indication: PSORIASIS
     Route: 048
  6. TALION [Concomitant]
     Indication: PSORIASIS
     Route: 048
  7. DIFLAL [Concomitant]
     Indication: PSORIASIS
     Route: 061
  8. OXAROL [Concomitant]
     Indication: PSORIASIS
     Route: 061
  9. DIFLAL [Concomitant]
     Indication: PSORIASIS
     Route: 061
     Dates: start: 20120521
  10. PETROLATUM SALICYLATE [Concomitant]
     Indication: PSORIASIS
     Route: 061
     Dates: start: 20120521

REACTIONS (1)
  - Lung neoplasm malignant [Recovered/Resolved]
